FAERS Safety Report 7506963-X (Version None)
Quarter: 2011Q2

REPORT INFORMATION
  Report Type: 
  Country: None (occurrence: None)
  Receive Date: 20110526
  Receipt Date: 20110512
  Transmission Date: 20111010
  Serious: Yes (Death)
  Sender: FDA-Public Use
  Company Number: US-UCBSA-032675

PATIENT
  Age: 60 Year
  Sex: Female
  Weight: 70.3 kg

DRUGS (13)
  1. CARVEDILOL [Concomitant]
  2. ADVAIR DISKUS 100/50 [Concomitant]
  3. INVESTIGATIONAL DRUG [Suspect]
     Route: 048
     Dates: start: 20090902, end: 20090916
  4. LORTAB [Concomitant]
  5. FOLIC ACID [Concomitant]
  6. METOLAZONE [Suspect]
     Indication: DIURETIC THERAPY
     Dates: start: 20090727
  7. METHOTREXATE [Concomitant]
  8. SPIRONOLACTONE [Suspect]
     Indication: DIURETIC THERAPY
  9. MONTELUKAST SODIUM [Concomitant]
  10. WARFARIN SODIUM [Concomitant]
  11. PREDNISONE [Concomitant]
  12. INVESTIGATIONAL DRUG [Suspect]
     Indication: RHEUMATOID ARTHRITIS
     Route: 048
     Dates: start: 20080122, end: 20090831
  13. LASIX [Suspect]
     Indication: DIURETIC THERAPY
     Route: 048
     Dates: start: 19910101

REACTIONS (1)
  - BRAIN INJURY [None]
